FAERS Safety Report 25725901 (Version 1)
Quarter: 2025Q3

REPORT INFORMATION
  Report Type: Spontaneous
  Country: EU (occurrence: EU)
  Receive Date: 20250826
  Receipt Date: 20250826
  Transmission Date: 20251020
  Serious: Yes (Other)
  Sender: RANBAXY
  Company Number: EU-SUN PHARMACEUTICAL INDUSTRIES INC-2025RR-524363

PATIENT
  Age: 58 Year
  Sex: Female
  Weight: 63 kg

DRUGS (4)
  1. AZITHROMYCIN [Suspect]
     Active Substance: AZITHROMYCIN
     Indication: Mycobacterium abscessus infection
     Dosage: 500 MILLIGRAM, DAILY
     Route: 048
     Dates: start: 20250319
  2. CEFTAROLINE FOSAMIL [Suspect]
     Active Substance: CEFTAROLINE FOSAMIL
     Indication: Mycobacterium abscessus infection
     Dosage: 600 MILLIGRAM, TID
     Route: 040
     Dates: start: 20250319, end: 20250424
  3. IMIPENEM [Suspect]
     Active Substance: IMIPENEM
     Indication: Mycobacterium abscessus infection
     Dosage: 1000 MILLIGRAM, BID
     Route: 040
     Dates: start: 20250319
  4. AMIKACIN [Suspect]
     Active Substance: AMIKACIN
     Indication: Mycobacterium abscessus infection
     Dosage: 2880 MILLIGRAM, WEEKLY, 960MG X3/WEEK
     Route: 040
     Dates: start: 20250319

REACTIONS (1)
  - Pruritus [Not Recovered/Not Resolved]

NARRATIVE: CASE EVENT DATE: 20250401
